FAERS Safety Report 14422841 (Version 1)
Quarter: 2018Q1

REPORT INFORMATION
  Report Type: Spontaneous
  Country: US (occurrence: US)
  Receive Date: 20180123
  Receipt Date: 20180123
  Transmission Date: 20180509
  Serious: No
  Sender: FDA-Public Use
  Company Number: US-BAYER-2018-014474

PATIENT
  Age: 76 Year
  Sex: Male
  Weight: 87.98 kg

DRUGS (1)
  1. MIRALAX [Suspect]
     Active Substance: POLYETHYLENE GLYCOL 3350
     Indication: COLONOSCOPY
     Dosage: 238 GRAMS TO 64 OZ OF GATORADE
     Route: 048
     Dates: start: 2016

REACTIONS (5)
  - Off label use [Unknown]
  - Product use issue [None]
  - Wrong technique in product usage process [None]
  - Drug administration error [None]
  - Product use in unapproved indication [None]

NARRATIVE: CASE EVENT DATE: 201710
